FAERS Safety Report 6112333-1 (Version None)
Quarter: 2009Q1

REPORT INFORMATION
  Report Type: 
  Country: None (occurrence: None)
  Receive Date: 20090311
  Receipt Date: 20090311
  Transmission Date: 20090719
  Serious: Yes (Hospitalization, Other)
  Sender: FDA-Public Use
  Company Number: None

PATIENT
  Age: 65 Year
  Sex: Female
  Weight: 57.6068 kg

DRUGS (1)
  1. RECLAST [Suspect]
     Indication: BONE DISORDER
     Dosage: 15 MIN. BY I.V. ONCE
     Route: 042
     Dates: start: 20081226

REACTIONS (5)
  - ABASIA [None]
  - ABNORMAL BEHAVIOUR [None]
  - MENTAL DISORDER [None]
  - RHEUMATOID ARTHRITIS [None]
  - URINARY INCONTINENCE [None]
